FAERS Safety Report 5566678-4 (Version None)
Quarter: 2007Q4

REPORT INFORMATION
  Report Type: 
  Country: None (occurrence: None)
  Receive Date: 20071219
  Receipt Date: 20071212
  Transmission Date: 20080405
  Serious: Yes (Hospitalization)
  Sender: FDA-Public Use
  Company Number: JP-ELI_LILLY_AND_COMPANY-JP200711006448

PATIENT
  Sex: Female
  Weight: 41 kg

DRUGS (6)
  1. GEMZAR [Suspect]
     Indication: BILE DUCT CANCER
     Dosage: 1000 MG, OTHER
     Route: 042
     Dates: start: 20070131, end: 20070909
  2. GASTER [Concomitant]
     Indication: GASTROINTESTINAL DISORDER
     Dosage: 20 MG, DAILY (1/D)
     Route: 048
     Dates: start: 20061228
  3. GASMOTIN [Concomitant]
     Indication: GASTROINTESTINAL DISORDER
     Dosage: 3 D/F, DAILY (1/D)
     Route: 048
     Dates: start: 20061228
  4. BERIZYM [Concomitant]
     Indication: GASTROINTESTINAL DISORDER
     Dosage: 1.5 G, DAILY (1/D)
     Route: 048
     Dates: start: 20061228
  5. AMLODIN [Concomitant]
     Indication: HYPERTENSION
     Dosage: 5 MG, DAILY (1/D)
     Route: 048
  6. ARTIST [Concomitant]
     Indication: HYPERTENSION
     Dosage: 0.125 MG, DAILY (1/D)
     Route: 048

REACTIONS (2)
  - NEPHROTIC SYNDROME [None]
  - OEDEMA PERIPHERAL [None]
